FAERS Safety Report 9540756 (Version 2)
Quarter: 2013Q3

REPORT INFORMATION
  Report Type: Spontaneous
  Country: US (occurrence: US)
  Receive Date: 20130920
  Receipt Date: 20130920
  Transmission Date: 20140515
  Serious: Yes (Other)
  Sender: FDA-Public Use
  Company Number: CHPA2012US013381

PATIENT
  Age: 67 Year
  Sex: Female

DRUGS (4)
  1. CONTROL PLP [Suspect]
     Indication: SMOKING CESSATION THERAPY
     Dosage: 21 MG, QD
     Route: 062
     Dates: start: 20120529
  2. XANAX [Concomitant]
     Dosage: 10 MG, 3-4 TIMES PER DAY
     Route: 048
     Dates: start: 20120526
  3. ATROVENT HFA [Concomitant]
     Dosage: UNK, UNK
  4. ALBUTEROL HFA [Concomitant]
     Dosage: UNK, UNK

REACTIONS (3)
  - Dyspnoea [Recovering/Resolving]
  - Treatment noncompliance [Unknown]
  - Overdose [Unknown]
